FAERS Safety Report 26041514 (Version 1)
Quarter: 2025Q4

REPORT INFORMATION
  Report Type: Spontaneous
  Country: GB (occurrence: GB)
  Receive Date: 20251113
  Receipt Date: 20251113
  Transmission Date: 20260117
  Serious: Yes (Hospitalization, Other)
  Sender: Kenvue
  Company Number: GB-KENVUE-20251103075

PATIENT

DRUGS (1)
  1. ACETAMINOPHEN [Suspect]
     Active Substance: ACETAMINOPHEN
     Indication: Product used for unknown indication
     Route: 065

REACTIONS (13)
  - Disseminated intravascular coagulation [Unknown]
  - Haemophagocytic lymphohistiocytosis [Unknown]
  - Vasoplegia syndrome [Unknown]
  - Cardiac failure [Unknown]
  - Metabolic disorder [Unknown]
  - Acute hepatic failure [Unknown]
  - Respiratory failure [Unknown]
  - Hyperlactacidaemia [Unknown]
  - Bacterial sepsis [Unknown]
  - Pneumonia [Unknown]
  - Thrombosis mesenteric vessel [Unknown]
  - Pancreatitis [Unknown]
  - Overdose [Unknown]
